FAERS Safety Report 12209634 (Version 1)
Quarter: 2016Q1

REPORT INFORMATION
  Report Type: Report from Study
  Country: BR (occurrence: BR)
  Receive Date: 20160325
  Receipt Date: 20160325
  Transmission Date: 20160526
  Serious: Yes (Other)
  Sender: FDA-Public Use
  Company Number: BR-ROCHE-1731128

PATIENT
  Sex: Female
  Weight: 97 kg

DRUGS (3)
  1. CHLOROQUINE. [Concomitant]
     Active Substance: CHLOROQUINE
     Indication: RHEUMATIC DISORDER
     Dosage: AT NIGHT
     Route: 065
  2. LEFLUNOMIDE. [Concomitant]
     Active Substance: LEFLUNOMIDE
     Indication: RHEUMATIC DISORDER
     Route: 065
  3. MABTHERA [Suspect]
     Active Substance: RITUXIMAB
     Indication: RHEUMATOID ARTHRITIS
     Dosage: LAST DOSE OF RITUXIMAB THERAPY:15/OCT/2015
     Route: 042
     Dates: start: 20120628

REACTIONS (3)
  - Carpal tunnel syndrome [Unknown]
  - Diabetes mellitus [Not Recovered/Not Resolved]
  - Spinal disorder [Unknown]
